FAERS Safety Report 6378348-3 (Version None)
Quarter: 2009Q3

REPORT INFORMATION
  Report Type: 
  Country: None (occurrence: None)
  Receive Date: 20090925
  Receipt Date: 20090715
  Transmission Date: 20100115
  Serious: Yes (Hospitalization, Other)
  Sender: FDA-Public Use
  Company Number: US-ASTRAZENECA-2007UW19283

PATIENT
  Age: 51 Year
  Sex: Female
  Weight: 181.4 kg

DRUGS (9)
  1. SEROQUEL [Suspect]
     Indication: BIPOLAR DISORDER
     Dosage: 25 - 100MG
     Route: 048
     Dates: start: 20040601
  2. SEROQUEL [Suspect]
     Dosage: 25-100 MG/DAY
     Route: 048
     Dates: start: 20030813
  3. PROZAC [Concomitant]
     Dosage: 20 MG THREE TABLET DAILY, 40 MG DAILY, 60 MG DAILY
     Route: 048
  4. AMBIEN [Concomitant]
     Indication: SLEEP DISORDER
     Route: 048
  5. WELLBUTRIN SR [Concomitant]
     Route: 048
  6. LANTUS U-100 INSULIN [Concomitant]
     Route: 065
  7. CYMBALTA [Concomitant]
     Route: 065
  8. METFORMIN HCL [Concomitant]
     Route: 048
  9. LAMICTAL [Concomitant]
     Route: 048

REACTIONS (11)
  - ARTHRALGIA [None]
  - BLOOD GLUCOSE INCREASED [None]
  - CRYING [None]
  - DEPRESSED MOOD [None]
  - DIABETES MELLITUS [None]
  - KETOACIDOSIS [None]
  - OBESITY [None]
  - PANCREATITIS [None]
  - SOMNOLENCE [None]
  - STRESS [None]
  - TYPE 2 DIABETES MELLITUS [None]
